FAERS Safety Report 4845937-4 (Version None)
Quarter: 2005Q4

REPORT INFORMATION
  Report Type: 
  Country: None (occurrence: None)
  Receive Date: 20051129
  Receipt Date: 20050531
  Transmission Date: 20060501
  Serious: Yes (Death, Other)
  Sender: FDA-Public Use
  Company Number: 2005BH000078

PATIENT
  Age: 70 Year

DRUGS (2)
  1. GAMMAGARD S/D [Suspect]
     Indication: IMMUNODEFICIENCY
  2. GAMMAR-P I.V. [Suspect]

REACTIONS (1)
  - CEREBROVASCULAR ACCIDENT [None]
